FAERS Safety Report 10587252 (Version 2)
Quarter: 2014Q4

REPORT INFORMATION
  Report Type: Spontaneous
  Country: US (occurrence: US)
  Receive Date: 20141117
  Receipt Date: 20141201
  Transmission Date: 20150529
  Serious: Yes (Death)
  Sender: FDA-Public Use
  Company Number: US-BEH-2014046243

PATIENT
  Age: 48 Year
  Sex: Male
  Weight: 83 kg

DRUGS (32)
  1. EPIPEN [Concomitant]
     Active Substance: EPINEPHRINE
  2. PREDNISONE. [Concomitant]
     Active Substance: PREDNISONE
  3. GINSENG [Concomitant]
  4. METAMUCIL [Concomitant]
     Active Substance: PLANTAGO SEED
  5. OXYGEN. [Concomitant]
     Active Substance: OXYGEN
  6. POTASSIUM [Concomitant]
     Active Substance: POTASSIUM
  7. CEFEPIME [Concomitant]
     Active Substance: CEFEPIME\CEFEPIME HYDROCHLORIDE
  8. ARTIFICIAL TEARS [Concomitant]
     Active Substance: GLYCERIN\HYPROMELLOSES\POLYETHYLENE GLYCOL 400
  9. ADVAIR HFA [Concomitant]
     Active Substance: FLUTICASONE PROPIONATE\SALMETEROL XINAFOATE
  10. BIAXIN [Concomitant]
     Active Substance: CLARITHROMYCIN
  11. CEFDINIR. [Concomitant]
     Active Substance: CEFDINIR
  12. ALLEGRA [Concomitant]
     Active Substance: FEXOFENADINE HYDROCHLORIDE
  13. VITAMIN C [Concomitant]
     Active Substance: ASCORBIC ACID
  14. VENTOLIN [Concomitant]
     Active Substance: ALBUTEROL SULFATE
  15. MULTI VITAMIN [Concomitant]
     Active Substance: VITAMINS
  16. MUCINEX [Concomitant]
     Active Substance: GUAIFENESIN
  17. PRIVIGEN [Suspect]
     Active Substance: HUMAN IMMUNOGLOBULIN G
     Indication: IMMUNODEFICIENCY COMMON VARIABLE
     Dosage: STARTED AT AGE 11 (1977)
     Route: 042
     Dates: end: 20141024
  18. SPIRIVA [Concomitant]
     Active Substance: TIOTROPIUM BROMIDE MONOHYDRATE
  19. SODIUM CHLORIDE. [Concomitant]
     Active Substance: SODIUM CHLORIDE
  20. SPIRONOLACTONE. [Concomitant]
     Active Substance: SPIRONOLACTONE
  21. BASE H-CARBOXYMETHYLCELLULOSE [Concomitant]
  22. ENSURE [Concomitant]
     Active Substance: AMINO ACIDS\DEXTROSE\ELECTROLYTES NOS\SOYBEAN OIL\VITAMINS
  23. ALL OTHER THERAPEUTIC PRODUCTS [Concomitant]
     Active Substance: UNSPECIFIED INGREDIENT
  24. CALCIUM + D [Concomitant]
     Active Substance: CALCIUM\VITAMIN D
  25. SOLU-MEDROL [Concomitant]
     Active Substance: METHYLPREDNISOLONE SODIUM SUCCINATE
  26. ALBUTEROL. [Concomitant]
     Active Substance: ALBUTEROL
  27. PROTONIX [Concomitant]
     Active Substance: PANTOPRAZOLE SODIUM
  28. HEPARIN [Concomitant]
     Active Substance: HEPARIN SODIUM
  29. COUMADIN [Concomitant]
     Active Substance: WARFARIN SODIUM
  30. TOBRADEX [Concomitant]
     Active Substance: DEXAMETHASONE\TOBRAMYCIN
  31. DIPHENHYDRAMINE [Concomitant]
     Active Substance: DIPHENHYDRAMINE
  32. RESTASIS [Concomitant]
     Active Substance: CYCLOSPORINE

REACTIONS (3)
  - Disease progression [Fatal]
  - Cardiac disorder [Fatal]
  - Cardiac arrest [Fatal]

NARRATIVE: CASE EVENT DATE: 20141024
